FAERS Safety Report 8699619 (Version 2)
Quarter: 2012Q4

REPORT INFORMATION
  Report Type: Report from Study
  Country: JP (occurrence: JP)
  Receive Date: 20120802
  Receipt Date: 20121025
  Transmission Date: 20130627
  Serious: No
  Sender: FDA-Public Use
  Company Number: JP-009507513-1207JPN011719

PATIENT

DRUGS (6)
  1. GANIREST [Suspect]
     Indication: PREVENTION OF PREMATURE OVULATION
     Dosage: 0.25 mg, qd
     Route: 058
     Dates: start: 20110527, end: 20110529
  2. GONAPURE [Concomitant]
     Indication: IN VITRO FERTILISATION
     Route: 030
     Dates: start: 20110520, end: 20110527
  3. MENOTROPINS [Concomitant]
     Indication: IN VITRO FERTILISATION
     Route: 030
     Dates: start: 20110528, end: 20110529
  4. GONADOTROPIN, CHORIONIC [Concomitant]
     Indication: OVULATION INDUCTION
     Route: 030
     Dates: start: 20110530, end: 20110530
  5. GONADOTROPIN, CHORIONIC [Concomitant]
     Indication: IN VITRO FERTILISATION
     Route: 030
     Dates: start: 20110906, end: 20110906
  6. LUTORAL (CHLORMADINONE ACETATE) [Concomitant]
     Indication: IN VITRO FERTILISATION
     Dosage: Divided dose frequency U
     Route: 048
     Dates: start: 20110902, end: 20110915

REACTIONS (2)
  - Abortion [Recovered/Resolved]
  - Exposure during pregnancy [None]
